FAERS Safety Report 18222509 (Version 1)
Quarter: 2020Q3

REPORT INFORMATION
  Report Type: Spontaneous
  Country: IL (occurrence: IL)
  Receive Date: 20200902
  Receipt Date: 20200902
  Transmission Date: 20201103
  Serious: Yes (Other)
  Sender: FDA-Public Use
  Company Number: IL-TEVA-2020-IL-1820488

PATIENT
  Sex: Female

DRUGS (2)
  1. SPIRONOLACTONE TEVA 25MG [Suspect]
     Active Substance: SPIRONOLACTONE
     Route: 065
  2. GLIMEPIRIDE TEVA 1MG [Suspect]
     Active Substance: GLIMEPIRIDE
     Route: 065

REACTIONS (4)
  - Product appearance confusion [Unknown]
  - Loss of consciousness [Unknown]
  - Product packaging confusion [Unknown]
  - Hypoglycaemia [Unknown]
